FAERS Safety Report 8782140 (Version 2)
Quarter: 2012Q4

REPORT INFORMATION
  Report Type: Report from Study
  Country: US (occurrence: US)
  Receive Date: 20120913
  Receipt Date: 20121212
  Transmission Date: 20130627
  Serious: Yes (Hospitalization, Other)
  Sender: FDA-Public Use
  Company Number: US-CELGENEUS-163-20785-09032193

PATIENT
  Age: 80 Year
  Sex: Female
  Weight: 47 kg

DRUGS (26)
  1. THALOMID [Suspect]
     Indication: MYELOMA
     Dosage: 100 Milligram
     Route: 048
     Dates: start: 20080916, end: 20081219
  2. MELPHALAN [Suspect]
     Indication: MYELOMA
     Dosage: 9 milligram/sq. meter
     Route: 048
     Dates: start: 20080916, end: 20081214
  3. PREDNISONE [Suspect]
     Indication: MYELOMA
     Dosage: 100 Milligram
     Route: 048
     Dates: start: 20080916, end: 20081214
  4. PREDNISONE [Suspect]
     Dosage: 50 Milligram
     Route: 048
  5. ASPIRIN [Concomitant]
     Indication: MYELOMA
     Dosage: 325 Milligram
     Route: 048
  6. ASPIRIN [Concomitant]
     Dosage: 81 Milligram
     Route: 048
  7. ZOCOR [Concomitant]
     Indication: DRUG USE FOR UNKNOWN INDICATION
     Dosage: 40 Milligram
     Route: 048
     Dates: start: 20080826
  8. ZETIA [Concomitant]
     Indication: DRUG USE FOR UNKNOWN INDICATION
     Dosage: 10 Milligram
     Route: 048
     Dates: start: 20080826
  9. HYZAAR [Concomitant]
     Indication: DRUG USE FOR UNKNOWN INDICATION
     Dosage: 100/25 1/2
     Route: 065
     Dates: start: 20080826
  10. FOSAMAX [Concomitant]
     Indication: DRUG USE FOR UNKNOWN INDICATION
     Dosage: 70 Milligram
     Route: 048
     Dates: start: 20080826
  11. DIPHENHYDRAMINE [Concomitant]
     Indication: DRUG USE FOR UNKNOWN INDICATION
     Dosage: 25 Milligram
     Route: 048
     Dates: start: 20080826
  12. ATIVAN [Concomitant]
     Indication: SLEEP DISORDER
     Dosage: 1/2
     Route: 048
     Dates: start: 20080826
  13. POTASSIUM CHLORIDE [Concomitant]
     Indication: DRUG USE FOR UNKNOWN INDICATION
     Dosage: 10 Milliequivalents
     Route: 048
     Dates: start: 20080826
  14. CALCIUM VIT D3 [Concomitant]
     Indication: DRUG USE FOR UNKNOWN INDICATION
     Dosage: 600-400mg
     Route: 048
  15. TYLENOL EXTRA STRENGTH [Concomitant]
     Indication: PAIN
     Dosage: 1-2
     Route: 048
  16. FLUTICASONE PROPIONATE [Concomitant]
     Indication: MULTIPLE ALLERGIES
     Dosage: 50 Microgram
     Route: 045
     Dates: start: 20080826
  17. ALLOPURINOL [Concomitant]
     Indication: DRUG USE FOR UNKNOWN INDICATION
     Dosage: 100 Milligram
     Route: 048
     Dates: start: 20090901
  18. ARANESP [Concomitant]
     Indication: DRUG USE FOR UNKNOWN INDICATION
     Dosage: 200mcg/0.4mL
     Route: 041
     Dates: start: 20090413
  19. COLACE [Concomitant]
     Indication: CONSTIPATION
     Dosage: 2 Capsule
     Route: 048
     Dates: start: 20090901
  20. COZAAR [Concomitant]
     Indication: BLOOD PRESSURE
     Dosage: 25 Milligram
     Route: 048
     Dates: start: 20090901
  21. COZAAR [Concomitant]
     Indication: KIDNEY DISORDER
  22. COZAAR [Concomitant]
     Indication: HEART DISORDER
  23. LASIX [Concomitant]
     Indication: DRUG USE FOR UNKNOWN INDICATION
     Dosage: 80 Milligram
     Route: 048
     Dates: start: 20090901
  24. MIRALAX [Concomitant]
     Indication: CONSTIPATION
     Dosage: 17 Gram
     Route: 048
     Dates: start: 20090901
  25. OCUVITE LUTEIN [Concomitant]
     Indication: DRUG USE FOR UNKNOWN INDICATION
     Dosage: 2 Capsule
     Route: 048
     Dates: start: 20090901
  26. RESTASIS [Concomitant]
     Indication: DRUG USE FOR UNKNOWN INDICATION
     Dosage: .1 Percent
     Route: 047
     Dates: start: 20090901

REACTIONS (2)
  - Myelodysplastic syndrome [Unknown]
  - Haemoglobin decreased [Recovered/Resolved]
